FAERS Safety Report 5877135-X (Version None)
Quarter: 2008Q3

REPORT INFORMATION
  Report Type: 
  Country: None (occurrence: None)
  Receive Date: 20080910
  Receipt Date: 20080904
  Transmission Date: 20090109
  Serious: Yes (Life-Threatening, Hospitalization)
  Sender: FDA-Public Use
  Company Number: US-AVENTIS-200714845EU

PATIENT
  Age: 72 Year
  Sex: Male
  Weight: 76.9 kg

DRUGS (17)
  1. LOVENOX [Suspect]
     Indication: ANTICOAGULANT THERAPY
     Route: 058
     Dates: start: 20070727, end: 20070815
  2. METHADONE HCL [Suspect]
     Indication: DRUG USE FOR UNKNOWN INDICATION
     Route: 048
     Dates: start: 20070101
  3. LEXAPRO [Suspect]
     Indication: DRUG USE FOR UNKNOWN INDICATION
     Route: 048
     Dates: start: 20070626
  4. COUMADIN [Suspect]
     Indication: ANTICOAGULANT THERAPY
     Route: 048
     Dates: start: 20070731
  5. COUMADIN [Suspect]
     Route: 048
  6. REGLAN [Concomitant]
     Route: 048
     Dates: start: 20070731
  7. NITROGLYCERIN [Concomitant]
     Route: 048
     Dates: start: 20010101
  8. GABAPENTIN [Concomitant]
     Route: 048
     Dates: start: 20060101
  9. MONOCLONAL ANTIBODIES [Concomitant]
     Route: 042
     Dates: start: 20070620, end: 20070620
  10. MONOCLONAL ANTIBODIES [Concomitant]
     Route: 042
     Dates: start: 20070711, end: 20070711
  11. MONOCLONAL ANTIBODIES [Concomitant]
     Route: 042
     Dates: start: 20070801, end: 20070801
  12. PACLITAXEL [Concomitant]
     Route: 042
     Dates: start: 20070619, end: 20070619
  13. PACLITAXEL [Concomitant]
     Route: 042
     Dates: start: 20070710, end: 20070710
  14. PACLITAXEL [Concomitant]
     Route: 042
     Dates: start: 20070731, end: 20070731
  15. CARBOPLATIN [Concomitant]
     Route: 042
     Dates: start: 20070619, end: 20070619
  16. CARBOPLATIN [Concomitant]
     Route: 042
     Dates: start: 20070710, end: 20070710
  17. CARBOPLATIN [Concomitant]
     Route: 042
     Dates: start: 20070731, end: 20070731

REACTIONS (2)
  - CHEST PAIN [None]
  - DYSPNOEA [None]
